FAERS Safety Report 8272345-9 (Version None)
Quarter: 2012Q2

REPORT INFORMATION
  Report Type: 
  Country: None (occurrence: None)
  Receive Date: 20120410
  Receipt Date: 20120327
  Transmission Date: 20120825
  Serious: Yes (Other)
  Sender: FDA-Public Use
  Company Number: IT-CELGENEUS-083-22393-12033362

PATIENT

DRUGS (1)
  1. ISTODAX [Suspect]
     Route: 065

REACTIONS (4)
  - PULMONARY EMBOLISM [None]
  - PYREXIA [None]
  - MYCOSIS FUNGOIDES STAGE IV [None]
  - INTRACARDIAC THROMBUS [None]
